FAERS Safety Report 19128142 (Version 1)
Quarter: 2021Q2

REPORT INFORMATION
  Report Type: Spontaneous
  Country: US (occurrence: US)
  Receive Date: 20210413
  Receipt Date: 20210413
  Transmission Date: 20210717
  Serious: No
  Sender: FDA-Public Use
  Company Number: US-ALLERGAN-2039680US

PATIENT
  Age: 35 Year
  Sex: Female

DRUGS (1)
  1. LATISSE [Suspect]
     Active Substance: BIMATOPROST
     Indication: GROWTH OF EYELASHES
     Dosage: 1 DROP TO BRUSH APPLICATOR AND APPLIED TO UPPER LASHLINE, SHE USED 1 APPLICATOR FOR EACH EYE
     Dates: start: 202010, end: 202010

REACTIONS (2)
  - Ocular hyperaemia [Recovered/Resolved]
  - Dry eye [Recovered/Resolved]

NARRATIVE: CASE EVENT DATE: 202010
